FAERS Safety Report 23941783 (Version 1)
Quarter: 2024Q2

REPORT INFORMATION
  Report Type: Spontaneous
  Country: IL (occurrence: None)
  Receive Date: 20240605
  Receipt Date: 20240605
  Transmission Date: 20240716
  Serious: Yes (Other)
  Sender: FDA-Public Use
  Company Number: IL-ROCHE-3574611

PATIENT
  Age: 65 Year
  Sex: Female

DRUGS (4)
  1. ATEZOLIZUMAB [Suspect]
     Active Substance: ATEZOLIZUMAB
     Indication: Triple negative breast cancer
     Route: 065
     Dates: start: 202301
  2. ABRAXANE [Suspect]
     Active Substance: PACLITAXEL
     Indication: Triple negative breast cancer
     Route: 065
     Dates: start: 202301
  3. XGEVA [Concomitant]
     Active Substance: DENOSUMAB
     Dates: start: 20230103
  4. XGEVA [Concomitant]
     Active Substance: DENOSUMAB
     Route: 058

REACTIONS (8)
  - Metastases to bone [Unknown]
  - Neuropathy peripheral [Unknown]
  - Asthenia [Unknown]
  - Lung opacity [Unknown]
  - Myalgia [Unknown]
  - Sacral pain [Unknown]
  - Carcinoembryonic antigen increased [Unknown]
  - Bone pain [Unknown]

NARRATIVE: CASE EVENT DATE: 20230701
